FAERS Safety Report 5015630-6 (Version None)
Quarter: 2006Q2

REPORT INFORMATION
  Report Type: 
  Country: None (occurrence: None)
  Receive Date: 20060601
  Receipt Date: 20060523
  Transmission Date: 20061013
  Serious: Yes (Hospitalization)
  Sender: FDA-Public Use
  Company Number: US-SANOFI-SYNTHELABO-F01200601278

PATIENT
  Sex: Female
  Weight: 51.7 kg

DRUGS (3)
  1. AVASTIN [Suspect]
     Route: 041
     Dates: start: 20060511, end: 20060511
  2. DOCETAXEL [Suspect]
     Route: 041
     Dates: start: 20060511, end: 20060511
  3. OXALIPLATIN [Suspect]
     Indication: OVARIAN CANCER
     Route: 041
     Dates: start: 20060511, end: 20060511

REACTIONS (3)
  - COLONIC FISTULA [None]
  - FEBRILE NEUTROPENIA [None]
  - FISTULA [None]
